FAERS Safety Report 10736297 (Version 1)
Quarter: 2015Q1

REPORT INFORMATION
  Report Type: Report from Study
  Country: ZW (occurrence: None)
  Receive Date: 20150122
  Receipt Date: 20150122
  Transmission Date: 20150721
  Serious: Yes (Death, Hospitalization, Other)
  Sender: FDA-Public Use
  Company Number: ZW2015GSK007050

PATIENT
  Age: 72 Year

DRUGS (6)
  1. VALPROATE SODIUM (VALPROATE SODIUM) [Concomitant]
     Active Substance: VALPROATE SODIUM
  2. RALTEGRAVIR (RALTEGRAVIR) [Concomitant]
     Active Substance: RALTEGRAVIR
  3. ZIDOVUDINE. [Suspect]
     Active Substance: ZIDOVUDINE
     Dates: start: 20141002
  4. LAMIVUDINE. [Suspect]
     Active Substance: LAMIVUDINE
     Dates: start: 20141002
  5. NEVIRAPINE (NEVIRAPINE) [Concomitant]
     Active Substance: NEVIRAPINE
  6. COTRIMOXAZOLE [Concomitant]
     Active Substance: SULFAMETHOXAZOLE\TRIMETHOPRIM

REACTIONS (6)
  - Cerebral ischaemia [None]
  - Encephalitis viral [None]
  - Blood glucose increased [None]
  - Anaemia [None]
  - Cerebral atrophy [None]
  - Hypoglycaemia [None]

NARRATIVE: CASE EVENT DATE: 20141127
